FAERS Safety Report 5016340-1 (Version None)
Quarter: 2006Q2

REPORT INFORMATION
  Report Type: 
  Country: None (occurrence: None)
  Receive Date: 20060414
  Receipt Date: 20060125
  Transmission Date: 20061013
  Serious: No
  Sender: FDA-Public Use
  Company Number: 2006SP000457

PATIENT
  Age: 54 Year
  Sex: Female
  Weight: 54.4316 kg

DRUGS (4)
  1. LUNESTA [Suspect]
     Indication: MALAISE
     Dosage: 3 MG;PRN
  2. LUNESTA [Suspect]
     Indication: STRESS
     Dosage: 3 MG;PRN
  3. CENESTIN [Concomitant]
  4. ZOLOFT [Concomitant]

REACTIONS (1)
  - DRUG ADMINISTRATION ERROR [None]
